FAERS Safety Report 6662480-0 (Version None)
Quarter: 2010Q1

REPORT INFORMATION
  Report Type: 
  Country: None (occurrence: None)
  Receive Date: 20100331
  Receipt Date: 20100325
  Transmission Date: 20100710
  Serious: Yes (Hospitalization, Disabling, Other)
  Sender: FDA-Public Use
  Company Number: US-MERCK-0712USA02113

PATIENT
  Age: 48 Year
  Sex: Female

DRUGS (2)
  1. FOSAMAX [Suspect]
     Indication: OSTEOPOROSIS
     Route: 048
     Dates: start: 19960101, end: 19970501
  2. PREMARIN [Concomitant]
     Indication: OSTEOPOROSIS
     Route: 065
     Dates: start: 19840101

REACTIONS (62)
  - ABSCESS [None]
  - ACTIVITIES OF DAILY LIVING IMPAIRED [None]
  - ANXIETY [None]
  - ARTHRALGIA [None]
  - ARTHROPATHY [None]
  - BACK PAIN [None]
  - BONE GRAFT [None]
  - BRUXISM [None]
  - COLPOSUSPENSION [None]
  - CONSTIPATION [None]
  - DEPRESSION [None]
  - DYSPLASIA [None]
  - DYSPNOEA [None]
  - EAR PAIN [None]
  - EXOSTOSIS [None]
  - FACIAL PAIN [None]
  - FISTULA [None]
  - GASTROOESOPHAGEAL REFLUX DISEASE [None]
  - GINGIVAL RECESSION [None]
  - GINGIVITIS [None]
  - HEADACHE [None]
  - HEPATITIS C [None]
  - HYPERHIDROSIS [None]
  - INSOMNIA [None]
  - INTERVERTEBRAL DISC DEGENERATION [None]
  - JAW FRACTURE [None]
  - JOINT EFFUSION [None]
  - JOINT RANGE OF MOTION DECREASED [None]
  - JOINT STIFFNESS [None]
  - LOOSE TOOTH [None]
  - MALAISE [None]
  - MALOCCLUSION [None]
  - MEMORY IMPAIRMENT [None]
  - MICROGENIA [None]
  - MOUTH CYST [None]
  - MOUTH HAEMORRHAGE [None]
  - MUSCULAR WEAKNESS [None]
  - MYALGIA [None]
  - NECK PAIN [None]
  - OBSESSIVE-COMPULSIVE DISORDER [None]
  - OEDEMA MOUTH [None]
  - ORAL DISCOMFORT [None]
  - OROPHARYNGEAL PLAQUE [None]
  - OSTEOARTHRITIS [None]
  - OSTEOCHONDROSIS [None]
  - OSTEONECROSIS [None]
  - PAIN [None]
  - PARAESTHESIA ORAL [None]
  - RECTOCELE [None]
  - ROAD TRAFFIC ACCIDENT [None]
  - SCIATICA [None]
  - SINUSITIS [None]
  - SPEECH DISORDER [None]
  - STOMATITIS [None]
  - STRESS URINARY INCONTINENCE [None]
  - TEMPOROMANDIBULAR JOINT SYNDROME [None]
  - TOOTH DISORDER [None]
  - TOOTH EXTRACTION [None]
  - TOOTH INFECTION [None]
  - TOOTHACHE [None]
  - VAGINOPERINEORRHAPHY [None]
  - WRIST SURGERY [None]
